FAERS Safety Report 10049098 (Version 3)
Quarter: 2014Q2

REPORT INFORMATION
  Report Type: Spontaneous
  Country: JP (occurrence: JP)
  Receive Date: 20140401
  Receipt Date: 20140411
  Transmission Date: 20141212
  Serious: Yes (Hospitalization, Other)
  Sender: FDA-Public Use
  Company Number: JP-B.I. PHARMACEUTICALS,INC./RIDGEFIELD-2014-BI-12314NB

PATIENT
  Age: 73 Year
  Sex: Male

DRUGS (6)
  1. BI-SIFROL [Suspect]
     Indication: PARKINSON^S DISEASE
     Dosage: 2 MG
     Route: 048
     Dates: start: 201303, end: 20140320
  2. METHYCOBAL / MECOBALAMIN [Concomitant]
     Indication: DIZZINESS
     Dosage: 1500 MCG
     Route: 048
  3. AMOBAN / ZOPICLONE [Concomitant]
     Indication: INSOMNIA
     Dosage: 7.5 MG
     Route: 048
  4. TATHION / GLUTATHIONE [Concomitant]
     Dosage: 300 MG
     Route: 048
  5. MARZULENE / SODIUM GUALENATE HYDRATE [Concomitant]
     Dosage: 4.5 G
     Route: 048
  6. PL / NON-PYRINE COLD PREPARATION [Concomitant]
     Route: 048

REACTIONS (5)
  - Oedema [Not Recovered/Not Resolved]
  - Electrolyte imbalance [Not Recovered/Not Resolved]
  - Inappropriate antidiuretic hormone secretion [Unknown]
  - Squamous cell carcinoma [Unknown]
  - Metastases to lymph nodes [Unknown]
